FAERS Safety Report 6825157-4 (Version None)
Quarter: 2010Q3

REPORT INFORMATION
  Report Type: 
  Country: None (occurrence: None)
  Receive Date: 20100708
  Receipt Date: 20061203
  Transmission Date: 20110219
  Serious: No
  Sender: FDA-Public Use
  Company Number: US-PFIZER INC-2006153151

PATIENT
  Sex: Female
  Weight: 68.04 kg

DRUGS (3)
  1. CHANTIX [Suspect]
     Indication: SMOKING CESSATION THERAPY
     Route: 048
     Dates: start: 20061123
  2. ZOLOFT [Concomitant]
     Indication: GENERALISED ANXIETY DISORDER
  3. SYNTHROID [Concomitant]

REACTIONS (2)
  - CRYING [None]
  - MENTAL IMPAIRMENT [None]
